FAERS Safety Report 21155180 (Version 1)
Quarter: 2022Q3

REPORT INFORMATION
  Report Type: Spontaneous
  Country: US (occurrence: None)
  Receive Date: 20220731
  Receipt Date: 20220731
  Transmission Date: 20221027
  Serious: No
  Sender: FDA-Public Use
  Company Number: None

PATIENT
  Age: 64 Year
  Sex: Female
  Weight: 68.4 kg

DRUGS (9)
  1. PAXLOVID [Suspect]
     Active Substance: NIRMATRELVIR\RITONAVIR
     Indication: COVID-19
     Dosage: FREQUENCY : TWICE A DAY;?
     Route: 048
     Dates: start: 20220706, end: 20220710
  2. amLODIPine (NORVASC) 5 mg tablet [Concomitant]
  3. calcium carbonate/vitamin D3 (CALCIUM 600 + D(3) PO) [Concomitant]
  4. ferrous sulfate (IRON PO) [Concomitant]
  5. LANSOPRAZOLE [Concomitant]
     Active Substance: LANSOPRAZOLE
  6. MULTIVITAMINS W-MINERALS/LUT (CENTRUM SILVER PO) [Concomitant]
  7. potassium chloride (KLOR-CON M20) 20 mEq extended release tablet [Concomitant]
  8. TRAZODONE [Concomitant]
     Active Substance: TRAZODONE HYDROCHLORIDE
  9. turmeric-turmeric root extract 450-50 mg cap [Concomitant]

REACTIONS (3)
  - Rebound effect [None]
  - COVID-19 [None]
  - SARS-CoV-2 test positive [None]

NARRATIVE: CASE EVENT DATE: 20220715
